FAERS Safety Report 11071034 (Version 2)
Quarter: 2015Q2

REPORT INFORMATION
  Report Type: Report from Study
  Country: DE (occurrence: DE)
  Receive Date: 20150428
  Receipt Date: 20150522
  Transmission Date: 20150821
  Serious: Yes (Other)
  Sender: FDA-Public Use
  Company Number: DE-BEH-2015050594

PATIENT
  Age: 79 Year
  Sex: Male
  Weight: 65 kg

DRUGS (4)
  1. PRIVIGEN [Suspect]
     Active Substance: HUMAN IMMUNOGLOBULIN G
     Indication: WALDENSTROM^S MACROGLOBULINAEMIA
     Dosage: INFUSION RATE: MIN. 1 ML/MIN, MAX. 2 ML/MIN
     Route: 042
     Dates: start: 20140116, end: 20140116
  2. PRIVIGEN [Suspect]
     Active Substance: HUMAN IMMUNOGLOBULIN G
     Dosage: INFUSION RATE: MIN. 1 ML/MIN, MAX. 2 ML/MIN
     Route: 042
     Dates: start: 20141007, end: 20141007
  3. PRIVIGEN [Suspect]
     Active Substance: HUMAN IMMUNOGLOBULIN G
     Dosage: INFUSION RATE: MIN. 1 ML/MIN, MAX. 2 ML/MIN
     Route: 042
     Dates: start: 20140314, end: 20140314
  4. PRIVIGEN [Suspect]
     Active Substance: HUMAN IMMUNOGLOBULIN G
     Dosage: INFUSION RATE: MIN. 1 ML/MIN, MAX. 2 ML/MIN
     Route: 042
     Dates: start: 20140214, end: 20140214

REACTIONS (3)
  - Bronchospasm [Recovered/Resolved]
  - Feeling cold [Recovered/Resolved]
  - Chills [Recovered/Resolved]

NARRATIVE: CASE EVENT DATE: 20141007
